FAERS Safety Report 9333264 (Version 2)
Quarter: 2013Q3

REPORT INFORMATION
  Report Type: Spontaneous
  Country: JP (occurrence: JP)
  Receive Date: 20130606
  Receipt Date: 20130701
  Transmission Date: 20140515
  Serious: No
  Sender: FDA-Public Use
  Company Number: JP-PFIZER INC-2013170210

PATIENT
  Age: 43 Year
  Sex: Female

DRUGS (1)
  1. JZOLOFT [Suspect]
     Indication: DEPRESSION
     Dosage: 25 MG, 1X/DAY
     Route: 048
     Dates: start: 20130423, end: 201305

REACTIONS (3)
  - Blood potassium decreased [Recovered/Resolved]
  - Decreased appetite [Unknown]
  - Weight decreased [Unknown]
